FAERS Safety Report 10179185 (Version 1)
Quarter: 2014Q2

REPORT INFORMATION
  Report Type: Spontaneous
  Country: US (occurrence: None)
  Receive Date: 20140515
  Receipt Date: 20140515
  Transmission Date: 20141212
  Serious: Yes (Other)
  Sender: FDA-Public Use
  Company Number: AUR-APL-2014-05538

PATIENT
  Age: 61 Year
  Sex: Male

DRUGS (3)
  1. OXYCODONE+PARACETAMOL (PARACETAMOL, OXYCODONE) [Suspect]
     Indication: PRODUCT USED FOR UNKNOWN INDICATION
  2. TRAMADOL [Suspect]
     Indication: PRODUCT USED FOR UNKNOWN INDICATION
  3. OXYGEN [Suspect]
     Indication: PRODUCT USED FOR UNKNOWN INDICATION
     Dosage: 30 HBO2 AT 2.4 ATM ABS FOR 90 MIN

REACTIONS (5)
  - Anxiety [None]
  - Epilepsy [None]
  - Drug withdrawal syndrome [None]
  - Tremor [None]
  - Convulsive threshold lowered [None]
